FAERS Safety Report 10239660 (Version 1)
Quarter: 2014Q2

REPORT INFORMATION
  Report Type: Spontaneous
  Country: US (occurrence: US)
  Receive Date: 20140616
  Receipt Date: 20140616
  Transmission Date: 20141212
  Serious: No
  Sender: FDA-Public Use
  Company Number: US-GILEAD-2014-0105215

PATIENT
  Age: 85 Year
  Sex: Male

DRUGS (3)
  1. LETAIRIS [Suspect]
     Indication: PRODUCT USED FOR UNKNOWN INDICATION
     Dosage: 10 MG, QD
     Route: 065
     Dates: start: 20130903
  2. REVATIO [Concomitant]
     Indication: UNEVALUABLE EVENT
  3. IPRATROPIUM [Concomitant]

REACTIONS (1)
  - Nasal congestion [Unknown]
